FAERS Safety Report 5756254-2 (Version None)
Quarter: 2008Q2

REPORT INFORMATION
  Report Type: 
  Country: None (occurrence: None)
  Receive Date: 20080602
  Receipt Date: 20080521
  Transmission Date: 20081010
  Serious: Yes (Other)
  Sender: FDA-Public Use
  Company Number: US-PFIZER INC-2008044514

PATIENT
  Sex: Male
  Weight: 78.2 kg

DRUGS (4)
  1. CHANTIX [Suspect]
     Dates: start: 20080516, end: 20080521
  2. ALL OTHER THERAPEUTIC PRODUCTS [Concomitant]
  3. DRUG, UNSPECIFIED [Concomitant]
  4. ATRIPLA [Concomitant]

REACTIONS (4)
  - DYSURIA [None]
  - KIDNEY INFECTION [None]
  - MICTURITION URGENCY [None]
  - RENAL PAIN [None]
